FAERS Safety Report 4639830-X (Version None)
Quarter: 2005Q2

REPORT INFORMATION
  Report Type: 
  Country: None (occurrence: None)
  Receive Date: 20050415
  Receipt Date: 20050405
  Transmission Date: 20051028
  Serious: Yes (Hospitalization)
  Sender: FDA-Public Use
  Company Number: 05P-163-0296254

PATIENT
  Age: 77 Year
  Sex: Female

DRUGS (13)
  1. HUMIRA 40MG/0.8 ML PRE-FILLED SRYINGE (HUMIRA) (ADALIMUMAB) (ADALIMUMA [Suspect]
     Indication: RHEUMATOID ARTHRITIS
     Dosage: 40 MG, 1 IN 2 WK, SUBCUTANEOUS
     Route: 058
     Dates: start: 20040526, end: 20050320
  2. PREDNISONE [Concomitant]
  3. GLUCOPHAGE [Concomitant]
  4. GLIMEPIRIDE [Concomitant]
  5. LEVOTHYROXINE SODIUM [Concomitant]
  6. TELMISARTAN [Concomitant]
  7. RISEDRONATE SODIUM [Concomitant]
  8. TRAMADOL HCL [Concomitant]
  9. FOLIC ACID [Concomitant]
  10. CRESTOR [Concomitant]
  11. LEXAPRO [Concomitant]
  12. ALPRAZOLAM [Concomitant]
  13. ACTOS [Concomitant]

REACTIONS (2)
  - ASTHENIA [None]
  - FATIGUE [None]
